FAERS Safety Report 8877595 (Version 1)
Quarter: 2012Q4

REPORT INFORMATION
  Report Type: 
  Country: TR (occurrence: TR)
  Receive Date: 20121024
  Receipt Date: 20121024
  Transmission Date: 20130627
  Serious: Yes (Other)
  Sender: FDA-Public Use
  Company Number: PHHY2012TR095141

PATIENT
  Age: 1 Month

DRUGS (1)
  1. VOLTAREN [Suspect]
     Indication: PAIN
     Dosage: 25 mg, BID

REACTIONS (2)
  - Cyanosis [Recovering/Resolving]
  - Gastric haemorrhage [Recovering/Resolving]
